FAERS Safety Report 6910327-7 (Version None)
Quarter: 2010Q3

REPORT INFORMATION
  Report Type: 
  Country: None (occurrence: None)
  Receive Date: 20100806
  Receipt Date: 20100727
  Transmission Date: 20110219
  Serious: Yes (Death, Life-Threatening, Hospitalization, Other)
  Sender: FDA-Public Use
  Company Number: US-PFIZER INC-2004106719

PATIENT
  Sex: Female
  Weight: 58.29 kg

DRUGS (21)
  1. NEURONTIN [Suspect]
     Indication: NEUROPATHY PERIPHERAL
     Dosage: 5 EVERY 1 DAYS
     Route: 048
     Dates: start: 20010301
  2. NEURONTIN [Suspect]
     Indication: CONVULSION
  3. NEURONTIN [Suspect]
     Indication: PAIN
  4. DIPHENHYDRAMINE [Suspect]
     Indication: ILL-DEFINED DISORDER
     Route: 048
  5. TOPROL-XL [Suspect]
     Indication: ILL-DEFINED DISORDER
     Route: 065
  6. SOMA [Suspect]
     Indication: ILL-DEFINED DISORDER
     Dosage: 1 OR 2 EVERY 4-6HOURS AS NECESSARY
     Route: 048
  7. MEPROBAMATE [Suspect]
     Indication: ILL-DEFINED DISORDER
     Route: 065
  8. DILAUDID [Suspect]
     Indication: ILL-DEFINED DISORDER
     Dosage: 1-2 EVERY 4-6HOURS AS NECESSARY
     Route: 048
  9. PREDNISONE [Concomitant]
     Route: 065
  10. DURAGESIC-100 [Concomitant]
     Route: 062
  11. PLENDIL [Concomitant]
     Route: 065
  12. CATAPRES [Concomitant]
     Route: 062
  13. ALTACE [Concomitant]
     Route: 065
  14. POTASSIUM [Concomitant]
     Route: 065
  15. PREVACID [Concomitant]
     Route: 065
  16. CLONAZEPAM [Concomitant]
     Route: 065
  17. URSODIOL [Concomitant]
     Route: 065
  18. STARLIX [Concomitant]
     Route: 065
  19. LORAZEPAM [Concomitant]
     Route: 065
  20. ALBUTEROL [Concomitant]
     Route: 055
  21. LASIX [Concomitant]
     Route: 065

REACTIONS (26)
  - ASTHENIA [None]
  - CERVICAL SPINAL STENOSIS [None]
  - COMPLETED SUICIDE [None]
  - CONVULSION [None]
  - DEPRESSION [None]
  - DIZZINESS [None]
  - DRUG INEFFECTIVE [None]
  - DRUG TOXICITY [None]
  - EXOSTOSIS [None]
  - FALL [None]
  - FATIGUE [None]
  - HEAD INJURY [None]
  - INTERVERTEBRAL DISC PROTRUSION [None]
  - LIGAMENT RUPTURE [None]
  - OSTEOARTHRITIS [None]
  - PAIN [None]
  - PERIARTHRITIS [None]
  - PSEUDARTHROSIS [None]
  - ROTATOR CUFF SYNDROME [None]
  - SPINAL DECOMPRESSION [None]
  - SPINAL DEFORMITY [None]
  - SPINAL FUSION SURGERY [None]
  - SPONDYLITIS [None]
  - SUICIDAL IDEATION [None]
  - SYNOVIAL CYST [None]
  - TENDONITIS [None]
